FAERS Safety Report 20103397 (Version 1)
Quarter: 2021Q4

REPORT INFORMATION
  Report Type: Spontaneous
  Country: US (occurrence: US)
  Receive Date: 20211123
  Receipt Date: 20211123
  Transmission Date: 20220304
  Serious: Yes (Other)
  Sender: FDA-Public Use
  Company Number: US-AMGEN-USASP2021181350

PATIENT
  Age: 28 Year
  Sex: Male

DRUGS (7)
  1. PEGFILGRASTIM [Suspect]
     Active Substance: PEGFILGRASTIM
     Indication: Product used for unknown indication
     Dosage: UNK
     Route: 065
  2. ETOPOSIDE [Suspect]
     Active Substance: ETOPOSIDE
     Indication: Testicular germ cell tumour mixed
     Dosage: UNK, 5 CYCLES
     Route: 065
  3. ETOPOSIDE [Suspect]
     Active Substance: ETOPOSIDE
     Indication: Metastases to stomach
  4. CISPLATIN [Suspect]
     Active Substance: CISPLATIN
     Indication: Testicular germ cell tumour mixed
     Dosage: UNK, 5 CYCLES
     Route: 065
  5. CISPLATIN [Suspect]
     Active Substance: CISPLATIN
     Indication: Metastases to stomach
  6. IFOSFAMIDE [Suspect]
     Active Substance: IFOSFAMIDE
     Indication: Testicular germ cell tumour mixed
     Dosage: UNK, 5 CYCLES
     Route: 065
  7. IFOSFAMIDE [Suspect]
     Active Substance: IFOSFAMIDE
     Indication: Metastases to stomach

REACTIONS (3)
  - Pneumonia [Unknown]
  - Fatigue [Unknown]
  - Nausea [Unknown]
